FAERS Safety Report 12815488 (Version 1)
Quarter: 2016Q4

REPORT INFORMATION
  Report Type: Report from Study
  Country: US (occurrence: US)
  Receive Date: 20161006
  Receipt Date: 20161006
  Transmission Date: 20170207
  Serious: No
  Sender: FDA-Public Use
  Company Number: US-AMGEN-USASL2016061766

PATIENT
  Age: 61 Year
  Sex: Female

DRUGS (3)
  1. VITAMINS                           /00067501/ [Concomitant]
     Active Substance: VITAMINS
  2. PROLIA [Suspect]
     Active Substance: DENOSUMAB
     Indication: PRODUCT USED FOR UNKNOWN INDICATION
     Dosage: UNK
     Route: 065
     Dates: start: 2013
  3. DEPAKOTE [Concomitant]
     Active Substance: DIVALPROEX SODIUM
     Dosage: 250 MG, QD

REACTIONS (2)
  - Eye disorder [Unknown]
  - Ear pain [Not Recovered/Not Resolved]
